FAERS Safety Report 7680861-3 (Version None)
Quarter: 2011Q3

REPORT INFORMATION
  Report Type: 
  Country: None (occurrence: None)
  Receive Date: 20110812
  Receipt Date: 20110808
  Transmission Date: 20111222
  Serious: Yes (Hospitalization)
  Sender: FDA-Public Use
  Company Number: JP-MERCK-1107USA04003

PATIENT
  Age: 60 Year
  Sex: Male

DRUGS (11)
  1. JANUVIA [Suspect]
     Indication: TYPE 2 DIABETES MELLITUS
     Route: 048
     Dates: end: 20110101
  2. FLUTICASONE PROPIONATE [Concomitant]
     Route: 065
  3. GANCICLOVIR [Concomitant]
     Route: 065
     Dates: start: 20110101, end: 20110101
  4. ERYTHROCIN LACTOBIONATE [Concomitant]
     Route: 065
  5. AMARYL [Concomitant]
     Route: 065
     Dates: end: 20110101
  6. CLEANAL [Concomitant]
     Route: 065
  7. SULFAMETHOXAZOLE [Concomitant]
     Route: 065
     Dates: start: 20110101, end: 20110101
  8. PENTAMIDINE ISETHIONATE [Suspect]
     Indication: PNEUMOCYSTIS JIROVECI PNEUMONIA
     Route: 042
     Dates: start: 20110101, end: 20110101
  9. PYRIDOXAL PHOSPHATE [Concomitant]
     Route: 065
  10. ISONIAZID [Concomitant]
     Route: 065
  11. HOKUNALIN [Concomitant]
     Route: 065

REACTIONS (5)
  - HYPERKALAEMIA [None]
  - RENAL FAILURE ACUTE [None]
  - HYPOGLYCAEMIA [None]
  - ALTERED STATE OF CONSCIOUSNESS [None]
  - PNEUMOCYSTIS JIROVECI PNEUMONIA [None]
